FAERS Safety Report 9195743 (Version 1)
Quarter: 2013Q1

REPORT INFORMATION
  Report Type: Spontaneous
  Country: US (occurrence: None)
  Receive Date: 20130325
  Receipt Date: 20130325
  Transmission Date: 20140127
  Serious: Yes (Life-Threatening, Disabling)
  Sender: FDA-Public Use
  Company Number: None

PATIENT
  Age: 62 Year
  Sex: Female
  Weight: 72.58 kg

DRUGS (1)
  1. ALENDRONATE [Suspect]
     Indication: OSTEOPOROSIS
     Dates: start: 20120108

REACTIONS (18)
  - Gingival pain [None]
  - Oral mucosal blistering [None]
  - Mouth ulceration [None]
  - Stomatitis [None]
  - Oropharyngeal pain [None]
  - Impaired healing [None]
  - Oral neoplasm [None]
  - Post procedural complication [None]
  - Haematochezia [None]
  - Rectal ulcer [None]
  - Lip swelling [None]
  - Lip ulceration [None]
  - Lip disorder [None]
  - Lip blister [None]
  - Gingival bleeding [None]
  - Epistaxis [None]
  - Mouth haemorrhage [None]
  - Rectal haemorrhage [None]
